FAERS Safety Report 6724574-0 (Version None)
Quarter: 2010Q2

REPORT INFORMATION
  Report Type: 
  Country: None (occurrence: None)
  Receive Date: 20100513
  Receipt Date: 20100430
  Transmission Date: 20101027
  Serious: Yes (Life-Threatening, Hospitalization, Disabling)
  Sender: FDA-Public Use
  Company Number: FR-PFIZER INC-2010026619

PATIENT
  Age: 12 Year
  Sex: Male

DRUGS (7)
  1. SOMATROPIN [Suspect]
     Indication: RENAL FAILURE CHRONIC
     Dosage: 10.5 MG, WEEKLY
     Dates: start: 20080130, end: 20090701
  2. CARNITINE [Concomitant]
     Dosage: 1.5 G, 1X/DAY
  3. CALCIUM BICARBONATE [Concomitant]
     Dosage: 1.5 G, 1X/DAY
     Route: 048
  4. SODIUM BICARBONATE [Concomitant]
     Dosage: 1.5 G, 1X/DAY
     Route: 048
  5. ARANESP [Concomitant]
     Dosage: 40 UG, MONTHLY
  6. FLAGYL [Concomitant]
     Dosage: 3 SPOONS DAILY
     Route: 048
  7. UN-ALFA [Concomitant]
     Dosage: 3 GTT, 1X/DAY
     Route: 048

REACTIONS (2)
  - METABOLIC ACIDOSIS [None]
  - RENAL FAILURE [None]
